FAERS Safety Report 20552824 (Version 1)
Quarter: 2022Q1

REPORT INFORMATION
  Report Type: Spontaneous
  Country: US (occurrence: None)
  Receive Date: 20220303
  Receipt Date: 20220303
  Transmission Date: 20220423
  Serious: Yes (Other)
  Sender: FDA-Public Use
  Company Number: None

PATIENT
  Age: 44 Year
  Sex: Male
  Weight: 99.45 kg

DRUGS (9)
  1. EVEROLIMUS [Suspect]
     Active Substance: EVEROLIMUS
     Indication: Neuroendocrine tumour
     Dosage: FREQUENCY : DAILY;?
     Route: 048
     Dates: start: 20210414, end: 20220303
  2. Famotidine 40mg tablet [Concomitant]
  3. Pantoprazole 40mg tablet [Concomitant]
  4. Clonidine 0.1mg tablet [Concomitant]
  5. Amlodipine 10mg tablet [Concomitant]
  6. Anti-diarrheal 2mg tablet [Concomitant]
  7. Aleve 220mg tablet [Concomitant]
  8. Prednisone 10mg tablet [Concomitant]
  9. Norco 5-325mg tablet [Concomitant]

REACTIONS (1)
  - Disease progression [None]

NARRATIVE: CASE EVENT DATE: 20220303
